FAERS Safety Report 8573750-3 (Version None)
Quarter: 2012Q3

REPORT INFORMATION
  Report Type: 
  Country: None (occurrence: None)
  Receive Date: 20120806
  Receipt Date: 20120731
  Transmission Date: 20120928
  Serious: Yes (Death)
  Sender: FDA-Public Use
  Company Number: US-GLAXOSMITHKLINE-A0988374A

PATIENT
  Age: 49 Year
  Sex: Female

DRUGS (5)
  1. NAPROXEN (ALEVE) [Concomitant]
  2. FENTANYL CITRATE [Concomitant]
  3. TYKERB [Suspect]
     Indication: BREAST CANCER
     Dosage: 1250MG PER DAY
     Route: 048
     Dates: start: 20120425
  4. ONDANSETRON [Concomitant]
  5. LACTULOSE [Concomitant]

REACTIONS (1)
  - DEATH [None]
